FAERS Safety Report 9529233 (Version 1)
Quarter: 2013Q2

REPORT INFORMATION
  Report Type: Spontaneous
  Country: US (occurrence: None)
  Receive Date: 20130401
  Receipt Date: 20130401
  Transmission Date: 20140414
  Serious: Yes (Other)
  Sender: FDA-Public Use
  Company Number: PHEH2012US011035

PATIENT
  Age: 65 Year
  Sex: Female

DRUGS (8)
  1. EXELON PATCH [Suspect]
     Indication: DEMENTIA ALZHEIMER^S TYPE
     Route: 062
  2. METOPROLOL (METOPROLOL), 50 MG [Concomitant]
  3. LEVOTHYROXINE (LEVOTHYROXINE), 75 MG [Concomitant]
  4. FUROSEMIDE (FUROSEMIDE) [Concomitant]
  5. ZOLOFT (SERTRALINE HYDROCHLORIDE) [Concomitant]
  6. OMEPRAZOLE (OMEPRAZOLE) [Concomitant]
  7. ASPIRIN (ACETYLSALICYLIC ACID) [Concomitant]
  8. SIMVASTATIN (SIMVASTATIN) [Concomitant]

REACTIONS (7)
  - Vertigo [None]
  - Dizziness [None]
  - Agitation [None]
  - Somnolence [None]
  - Pain [None]
  - Feeling abnormal [None]
  - Wrong technique in drug usage process [None]
